FAERS Safety Report 9392071 (Version 2)
Quarter: 2013Q3

REPORT INFORMATION
  Report Type: Spontaneous
  Country: DE (occurrence: DE)
  Receive Date: 20130709
  Receipt Date: 20130719
  Transmission Date: 20140515
  Serious: Yes (Other)
  Sender: FDA-Public Use
  Company Number: DE-UCBSA-090967

PATIENT
  Sex: Male

DRUGS (10)
  1. KEPPRA [Suspect]
     Dosage: 1 TABLET OF 500 MG, TOTAL AMOUNT: 500 MG
     Route: 048
     Dates: start: 20130626
  2. METOPROLOL [Suspect]
     Dosage: UNKNOWN AMOUNT
     Route: 048
     Dates: start: 20130626
  3. SEROQUEL PROLONG [Suspect]
     Dosage: 1 TABLET OF 50 MG, TOTAL AMOUNT: 50 MG
     Route: 048
     Dates: start: 20130626
  4. LISINOPRIL [Suspect]
     Dosage: 1 TABLET OF 20 MG, TOTAL AMOUNT: 20 MG
     Route: 048
     Dates: start: 20130626
  5. FLECAINID [Suspect]
     Dosage: 1 TABLET OF 100 MG, TOTAL AMOUNT: 100 MG
     Route: 048
     Dates: start: 20130626
  6. MELNEURIN [Suspect]
     Dosage: TOTAL AMOUNT: 25 MG
     Route: 048
     Dates: start: 20130626
  7. RAMIPRIL [Suspect]
     Dosage: UNKNOWN AMOUNT
     Route: 048
     Dates: start: 20130626
  8. AMLODIPIN [Suspect]
     Dosage: UNKNOWN AMOUNT
     Route: 048
     Dates: start: 20130626
  9. RISPERDAL [Suspect]
     Dosage: DOSE STRENGH : 1 MG , UNKNOWN AMOUNT
     Route: 048
     Dates: start: 20130626
  10. RISPERIDON [Suspect]
     Dosage: UNKNOWN AMOUNT
     Route: 030
     Dates: start: 20130626

REACTIONS (3)
  - Hypotension [Unknown]
  - Accidental exposure to product [Unknown]
  - Somnolence [Unknown]
